FAERS Safety Report 5789044-5 (Version None)
Quarter: 2008Q2

REPORT INFORMATION
  Report Type: 
  Country: None (occurrence: None)
  Receive Date: 20080626
  Receipt Date: 20080623
  Transmission Date: 20081010
  Serious: Yes (Life-Threatening, Hospitalization, Other)
  Sender: FDA-Public Use
  Company Number: B0521307A

PATIENT
  Age: 33 Year
  Sex: Female
  Weight: 93 kg

DRUGS (1)
  1. AUGMENTIN '125' [Suspect]
     Indication: CHOLECYSTECTOMY
     Dosage: 375MG UNKNOWN
     Route: 048
     Dates: start: 20080307, end: 20080301

REACTIONS (4)
  - ACUTE HEPATIC FAILURE [None]
  - ALANINE AMINOTRANSFERASE INCREASED [None]
  - MALAISE [None]
  - RENAL FAILURE [None]
